FAERS Safety Report 17287762 (Version 1)
Quarter: 2020Q1

REPORT INFORMATION
  Report Type: Spontaneous
  Country: US (occurrence: US)
  Receive Date: 20200120
  Receipt Date: 20200120
  Transmission Date: 20200409
  Serious: No
  Sender: FDA-Public Use
  Company Number: US-AUROBINDO-AUR-APL-2019-104184

PATIENT
  Age: 75 Year
  Sex: Male
  Weight: 99.79 kg

DRUGS (4)
  1. TADALAFIL TABLETS USP 20 MG [Suspect]
     Active Substance: TADALAFIL
     Dosage: 1 DOSAGE FORM, ONCE A DAY (1 TABLET PER DAY AT 06 PM)
     Route: 065
     Dates: start: 20191121, end: 20191201
  2. FINASTERIDE. [Concomitant]
     Active Substance: FINASTERIDE
     Indication: PRODUCT USED FOR UNKNOWN INDICATION
     Dosage: UNK
     Route: 065
  3. TAMSULOSIN [Concomitant]
     Active Substance: TAMSULOSIN
     Indication: PRODUCT USED FOR UNKNOWN INDICATION
     Dosage: UNK
     Route: 065
  4. TADALAFIL TABLETS USP 20 MG [Suspect]
     Active Substance: TADALAFIL
     Indication: ERECTILE DYSFUNCTION
     Dosage: UNK
     Route: 065
     Dates: start: 201908

REACTIONS (4)
  - Insomnia [Recovering/Resolving]
  - Abdominal pain upper [Recovering/Resolving]
  - Dyspepsia [Recovering/Resolving]
  - Gastrooesophageal reflux disease [Recovering/Resolving]

NARRATIVE: CASE EVENT DATE: 20191122
